FAERS Safety Report 8867369 (Version 1)
Quarter: 2012Q4

REPORT INFORMATION
  Report Type: 
  Country: US (occurrence: US)
  Receive Date: 20121025
  Receipt Date: 20121025
  Transmission Date: 20130627
  Serious: No
  Sender: FDA-Public Use
  Company Number: US-AMGEN-USASP2012015984

PATIENT
  Age: 59 Year
  Sex: Female
  Weight: 45.35 kg

DRUGS (12)
  1. ENBREL [Suspect]
     Indication: PRODUCT USED FOR UNKNOWN INDICATION
     Dosage: 50 mg, qwk
     Route: 058
  2. LODINE [Concomitant]
     Dosage: 400 mg, UNK
  3. BUPROPION [Concomitant]
     Dosage: 100 mg, UNK
  4. PRISTIQ [Concomitant]
     Dosage: 100 mg, UNK
  5. LISINOPRIL [Concomitant]
     Dosage: 10 mg, UNK
  6. PRAVASTATIN [Concomitant]
     Dosage: 10 mg, UNK
  7. ESTRACE [Concomitant]
     Dosage: 2 mg, UNK
  8. MAGNESIUM [Concomitant]
     Dosage: 300 mg, UNK
  9. CALCIUM + VIT D [Concomitant]
     Dosage: UNK
  10. MULTIVITAMIN                       /00831701/ [Concomitant]
     Dosage: UNK
  11. RECLAST [Concomitant]
     Dosage: UNK
  12. LYRICA [Concomitant]
     Dosage: 150 mg, UNK

REACTIONS (1)
  - Injection site pain [Unknown]
